FAERS Safety Report 5106320-X (Version None)
Quarter: 2006Q3

REPORT INFORMATION
  Report Type: 
  Country: None (occurrence: None)
  Receive Date: 20060918
  Receipt Date: 20060905
  Transmission Date: 20061208
  Serious: Yes (Hospitalization)
  Sender: FDA-Public Use
  Company Number: HQWYE410207SEP06

PATIENT
  Sex: Female

DRUGS (2)
  1. ENBREL [Suspect]
     Indication: RHEUMATOID ARTHRITIS
     Route: 058
     Dates: start: 20060620, end: 20060813
  2. D-PENICILLAMINE [Concomitant]

REACTIONS (2)
  - COLITIS ISCHAEMIC [None]
  - PYELONEPHRITIS [None]
